FAERS Safety Report 22111604 (Version 1)
Quarter: 2023Q1

REPORT INFORMATION
  Report Type: Spontaneous
  Country: FR (occurrence: FR)
  Receive Date: 20230318
  Receipt Date: 20230318
  Transmission Date: 20230417
  Serious: Yes (Death, Life-Threatening, Hospitalization)
  Sender: FDA-Public Use
  Company Number: FR-MACLEODS PHARMACEUTICALS US LTD-MAC2023040287

PATIENT

DRUGS (4)
  1. ACYCLOVIR [Suspect]
     Active Substance: ACYCLOVIR
     Indication: Herpes simplex
     Dosage: 200 MILLIGRAM, TID
     Route: 042
     Dates: start: 20220214, end: 20220221
  2. ACYCLOVIR [Suspect]
     Active Substance: ACYCLOVIR
     Dosage: 600 MILLIGRAM, TID
     Route: 042
     Dates: start: 20220301, end: 20220311
  3. MYCOPHENOLIC ACID [Concomitant]
     Active Substance: MYCOPHENOLIC ACID
     Indication: Immunosuppressant drug therapy
     Dosage: 500 MILLIGRAM, BID
     Route: 065
     Dates: start: 20211101, end: 20220221
  4. TACROLIMUS [Concomitant]
     Active Substance: TACROLIMUS
     Indication: Immunosuppressant drug therapy
     Dosage: UNK (TARGET CONCENTRATION: 5-7NG/ML)
     Route: 065
     Dates: start: 20211101, end: 20220221

REACTIONS (3)
  - Multiple organ dysfunction syndrome [Fatal]
  - Post intensive care syndrome [Fatal]
  - Drug resistance [Unknown]

NARRATIVE: CASE EVENT DATE: 20220301
